FAERS Safety Report 22634609 (Version 1)
Quarter: 2023Q2

REPORT INFORMATION
  Report Type: Spontaneous
  Country: GB (occurrence: GB)
  Receive Date: 20230623
  Receipt Date: 20230623
  Transmission Date: 20230722
  Serious: Yes (Other)
  Sender: FDA-Public Use
  Company Number: GB-MHRA-MED-202306182115211270-MKFZB

PATIENT
  Age: 43 Year
  Sex: Male

DRUGS (5)
  1. LANSOPRAZOLE [Suspect]
     Active Substance: LANSOPRAZOLE
     Indication: Gastrooesophageal reflux disease
     Dosage: 30 MILLIGRAM QD (30MG/DAY)
     Route: 065
  2. LANSOPRAZOLE [Suspect]
     Active Substance: LANSOPRAZOLE
     Dosage: 15 MILLIGRAM QD (15MG/DAY)
     Route: 065
     Dates: end: 20230616
  3. ANASTROZOLE [Concomitant]
     Active Substance: ANASTROZOLE
     Indication: Oestradiol abnormal
     Dosage: UNK
     Route: 065
  4. GONADOTROPHIN, CHORIONIC [Concomitant]
     Active Substance: GONADOTROPHIN, CHORIONIC
     Indication: Blood testosterone abnormal
     Dosage: UNK
     Route: 065
  5. TESTOSTERONE CYPIONATE [Concomitant]
     Active Substance: TESTOSTERONE CYPIONATE
     Indication: Blood testosterone abnormal
     Dosage: UNK
     Route: 065

REACTIONS (1)
  - Erectile dysfunction [Recovering/Resolving]
